FAERS Safety Report 13455444 (Version 3)
Quarter: 2017Q2

REPORT INFORMATION
  Report Type: Report from Study
  Country: US (occurrence: US)
  Receive Date: 20170418
  Receipt Date: 20170530
  Transmission Date: 20170830
  Serious: Yes (Hospitalization, Other)
  Sender: FDA-Public Use
  Company Number: US-BAYER-2017-041504

PATIENT
  Age: 73 Year
  Sex: Male

DRUGS (6)
  1. NEXAVAR [Suspect]
     Active Substance: SORAFENIB
     Indication: HEPATOCELLULAR CARCINOMA
     Dosage: 400 MG DAILY
     Route: 048
     Dates: start: 20170318, end: 20170319
  2. NEXAVAR [Suspect]
     Active Substance: SORAFENIB
     Indication: HEPATOCELLULAR CARCINOMA
     Dosage: 400 MG, BID
     Route: 048
     Dates: start: 20170223, end: 20170307
  3. NEXAVAR [Suspect]
     Active Substance: SORAFENIB
     Indication: HEPATOCELLULAR CARCINOMA
     Dosage: 200 MG, QD
     Route: 048
     Dates: start: 20170316, end: 20170317
  4. NEXAVAR [Suspect]
     Active Substance: SORAFENIB
     Indication: HEPATOCELLULAR CARCINOMA
     Dosage: 200 MG, BID
     Route: 048
     Dates: start: 20170327, end: 20170405
  5. NEXAVAR [Suspect]
     Active Substance: SORAFENIB
     Indication: HEPATOCELLULAR CARCINOMA
     Dosage: 600 MG DAILY
     Route: 048
     Dates: start: 20170320, end: 20170326
  6. NEXAVAR [Suspect]
     Active Substance: SORAFENIB
     Indication: HEPATOCELLULAR CARCINOMA
     Dosage: 200 MG, EVERY EVENING
     Route: 048
     Dates: start: 20170515, end: 20170516

REACTIONS (28)
  - Anaemia [None]
  - Hypotension [None]
  - Mucosal inflammation [None]
  - Fatigue [Not Recovered/Not Resolved]
  - Insomnia [Not Recovered/Not Resolved]
  - Pruritus generalised [None]
  - Dry skin [None]
  - Nasal inflammation [Recovered/Resolved]
  - Fluid overload [None]
  - Rectal haemorrhage [None]
  - Gastrointestinal haemorrhage [None]
  - Underdose [None]
  - Syncope [None]
  - Dyspnoea [None]
  - Hyperglycaemia [Not Recovered/Not Resolved]
  - Dyspnoea [Not Recovered/Not Resolved]
  - Flushing [None]
  - Restlessness [Not Recovered/Not Resolved]
  - Blood pressure systolic increased [None]
  - Anxiety [Not Recovered/Not Resolved]
  - Cardiac failure congestive [None]
  - Asthenia [Not Recovered/Not Resolved]
  - Diarrhoea [None]
  - Hypotension [None]
  - Hypersensitivity [None]
  - Somnolence [Not Recovered/Not Resolved]
  - Rash [None]
  - Feeling cold [None]

NARRATIVE: CASE EVENT DATE: 2017
